FAERS Safety Report 13179090 (Version 1)
Quarter: 2017Q1

REPORT INFORMATION
  Report Type: Spontaneous
  Country: US (occurrence: US)
  Receive Date: 20170202
  Receipt Date: 20170202
  Transmission Date: 20170428
  Serious: Yes (Other)
  Sender: FDA-Public Use
  Company Number: US-FRESENIUS KABI-FK201700881

PATIENT
  Age: 70 Year
  Sex: Female

DRUGS (2)
  1. PHENOL. [Concomitant]
     Active Substance: PHENOL
     Indication: LOCAL ANAESTHESIA
     Route: 001
  2. DEXAMETHASONE INJECTION (MANUFACTURER UNKNOWN) [Suspect]
     Active Substance: DEXAMETHASONE
     Indication: PRODUCT USED FOR UNKNOWN INDICATION
     Route: 050

REACTIONS (3)
  - Tympanic membrane perforation [Unknown]
  - Off label use [Unknown]
  - Product use issue [Unknown]
